FAERS Safety Report 6857022-0 (Version None)
Quarter: 2010Q3

REPORT INFORMATION
  Report Type: 
  Country: None (occurrence: None)
  Receive Date: 20100719
  Receipt Date: 20100712
  Transmission Date: 20110219
  Serious: Yes (Hospitalization)
  Sender: FDA-Public Use
  Company Number: A0870711A

PATIENT
  Age: 46 Year
  Sex: Male

DRUGS (2)
  1. AVANDIA [Suspect]
     Route: 048
     Dates: start: 19990101, end: 20050101
  2. AVANDAMET [Suspect]
     Route: 048
     Dates: start: 19990101, end: 20050101

REACTIONS (5)
  - CARDIAC DISORDER [None]
  - HYPOAESTHESIA [None]
  - PERIPHERAL COLDNESS [None]
  - SENSORY LOSS [None]
  - TACHYCARDIA [None]
